FAERS Safety Report 13065660 (Version 2)
Quarter: 2017Q1

REPORT INFORMATION
  Report Type: Spontaneous
  Country: US (occurrence: US)
  Receive Date: 20161227
  Receipt Date: 20170104
  Transmission Date: 20170428
  Serious: No
  Sender: FDA-Public Use
  Company Number: US-CELGENEUS-USA-2016126232

PATIENT
  Age: 57 Year
  Sex: Male

DRUGS (1)
  1. REVLIMID [Suspect]
     Active Substance: LENALIDOMIDE
     Indication: PLASMA CELL MYELOMA
     Dosage: 25 MILLIGRAM MORNING FOR 14 DAYS ON THEN 7 DAYS OFF
     Route: 048
     Dates: start: 20161118

REACTIONS (1)
  - Adverse drug reaction [Unknown]

NARRATIVE: CASE EVENT DATE: 20161220
